FAERS Safety Report 15507012 (Version 1)
Quarter: 2018Q4

REPORT INFORMATION
  Report Type: Spontaneous
  Country: FR (occurrence: FR)
  Receive Date: 20181016
  Receipt Date: 20181016
  Transmission Date: 20190205
  Serious: Yes (Hospitalization)
  Sender: FDA-Public Use
  Company Number: FR-BAXTER-2018BAX025230

PATIENT
  Age: 35 Year
  Sex: Male
  Weight: 69.5 kg

DRUGS (8)
  1. UROMITEXAN 5 G/50 ML, SOLUTION INJECTABLE POUR PERFUSION EN FLACON [Suspect]
     Active Substance: MESNA
     Indication: B-CELL LYMPHOMA
     Route: 042
     Dates: start: 20180828, end: 20180829
  2. MIDAZOLAM [Suspect]
     Active Substance: MIDAZOLAM HYDROCHLORIDE
     Indication: SEDATION
     Route: 042
     Dates: start: 20180825, end: 20180904
  3. VALACICLOVIR [Suspect]
     Active Substance: VALACYCLOVIR HYDROCHLORIDE
     Indication: OPPORTUNISTIC INFECTION PROPHYLAXIS
     Route: 048
     Dates: start: 2018, end: 20180904
  4. CARBOPLATINE ACCORD [Suspect]
     Active Substance: CARBOPLATIN
     Indication: B-CELL LYMPHOMA
     Route: 042
     Dates: start: 20180827, end: 20180827
  5. BACTRIM [Suspect]
     Active Substance: SULFAMETHOXAZOLE\TRIMETHOPRIM
     Indication: OPPORTUNISTIC INFECTION PROPHYLAXIS
     Dosage: TABLET
     Route: 048
     Dates: start: 2018, end: 20180904
  6. HOLOXAN 2000 MG, POUDRE POUR USAGE PARENT?RAL [Suspect]
     Active Substance: IFOSFAMIDE
     Indication: B-CELL LYMPHOMA
     Route: 042
     Dates: start: 20180828, end: 20180828
  7. CELLTOP 100 MG/5 ML, SOLUTION INJECTABLE POUR PERFUSION [Suspect]
     Active Substance: ETOPOSIDE
     Indication: B-CELL LYMPHOMA
     Route: 042
     Dates: start: 20180827, end: 20180828
  8. FENTANYL. [Suspect]
     Active Substance: FENTANYL
     Indication: SEDATION
     Route: 042
     Dates: start: 20180825, end: 20180904

REACTIONS (1)
  - Acute kidney injury [Not Recovered/Not Resolved]

NARRATIVE: CASE EVENT DATE: 20180827
